FAERS Safety Report 7736748-0 (Version None)
Quarter: 2011Q3

REPORT INFORMATION
  Report Type: 
  Country: None (occurrence: None)
  Receive Date: 20110902
  Receipt Date: 20110822
  Transmission Date: 20111222
  Serious: Yes (Life-Threatening, Hospitalization, Disabling)
  Sender: FDA-Public Use
  Company Number: 2011MA012390

PATIENT
  Age: 49 Year
  Sex: Male

DRUGS (1)
  1. ZOLPIDEM TARTRATE [Suspect]
     Indication: INSOMNIA

REACTIONS (17)
  - CONFUSIONAL STATE [None]
  - AMNESIA [None]
  - HAEMORRHAGE INTRACRANIAL [None]
  - DISORIENTATION [None]
  - PARASOMNIA [None]
  - SOMNAMBULISM [None]
  - SUBARACHNOID HAEMORRHAGE [None]
  - GUN SHOT WOUND [None]
  - INTENTIONAL SELF-INJURY [None]
  - ALCOHOL USE [None]
  - SUBDURAL HAEMATOMA [None]
  - DELIRIUM [None]
  - INTRACRANIAL HAEMATOMA [None]
  - BLOOD ALCOHOL INCREASED [None]
  - SLEEP-RELATED EATING DISORDER [None]
  - PNEUMONIA [None]
  - BLINDNESS [None]
